FAERS Safety Report 4702038-3 (Version None)
Quarter: 2005Q2

REPORT INFORMATION
  Report Type: 
  Country: None (occurrence: None)
  Receive Date: 20050627
  Receipt Date: 20050613
  Transmission Date: 20051028
  Serious: Yes (Hospitalization, Other)
  Sender: FDA-Public Use
  Company Number: 2005079867

PATIENT
  Age: 51 Year
  Sex: Female

DRUGS (4)
  1. NEURONTIN [Suspect]
     Indication: HYPOAESTHESIA
     Dosage: 300 MG (300 MG, 1 IN 1 D), ORAL
     Route: 048
     Dates: start: 20040101, end: 20050524
  2. NEURONTIN [Suspect]
     Indication: SCIATICA
     Dosage: 300 MG (300 MG, 1 IN 1 D), ORAL
     Route: 048
     Dates: start: 20040101, end: 20050524
  3. ZOLOFT [Concomitant]
  4. ALL OTHER THERAPEUTIC PRODUCTS (ALL OTHERTHERAPEUTIC PRODUCTS) [Concomitant]

REACTIONS (11)
  - CHEST PAIN [None]
  - DRUG INEFFECTIVE [None]
  - DYSPHEMIA [None]
  - DYSPNOEA [None]
  - FATIGUE [None]
  - HEADACHE [None]
  - HYPOAESTHESIA [None]
  - MEMORY IMPAIRMENT [None]
  - MUSCLE TWITCHING [None]
  - SPEECH DISORDER [None]
  - WEIGHT DECREASED [None]
